FAERS Safety Report 6872149-5 (Version None)
Quarter: 2010Q3

REPORT INFORMATION
  Report Type: 
  Country: None (occurrence: None)
  Receive Date: 20100723
  Receipt Date: 20100715
  Transmission Date: 20110219
  Serious: Yes (Other)
  Sender: FDA-Public Use
  Company Number: CHPA2010US11607

PATIENT
  Age: 31 Year
  Sex: Female
  Weight: 58.957 kg

DRUGS (2)
  1. EXCEDRIN (MIGRAINE) [Suspect]
     Indication: MIGRAINE
     Dosage: 2 TABLETS IN A DAY
     Route: 048
     Dates: start: 20100715, end: 20100715
  2. EXCEDRIN (MIGRAINE) [Suspect]
     Dosage: UNK, PRN
     Route: 048

REACTIONS (5)
  - FEELING ABNORMAL [None]
  - FEELING JITTERY [None]
  - HYPERHIDROSIS [None]
  - LOSS OF CONSCIOUSNESS [None]
  - PALPITATIONS [None]
